FAERS Safety Report 9442825 (Version 1)
Quarter: 2013Q3

REPORT INFORMATION
  Report Type: Spontaneous
  Country: DE (occurrence: DE)
  Receive Date: 20130806
  Receipt Date: 20130806
  Transmission Date: 20140515
  Serious: Yes (Death, Hospitalization)
  Sender: FDA-Public Use
  Company Number: DE-ROCHE-1253824

PATIENT
  Age: 55 Year
  Sex: Male
  Weight: 55 kg

DRUGS (9)
  1. AVASTIN [Suspect]
     Indication: COLON CANCER
     Route: 042
     Dates: start: 20130115, end: 20130423
  2. OXALIPLATIN [Suspect]
     Indication: COLON CANCER
     Route: 042
     Dates: start: 20130115, end: 20130423
  3. CALCIUM FOLINATE [Suspect]
     Indication: COLON CANCER
     Route: 042
     Dates: start: 20130115, end: 20130423
  4. 5-FLUOROURACIL [Suspect]
     Indication: COLON CANCER
     Route: 042
     Dates: start: 20130115, end: 20130423
  5. FENTANYL [Concomitant]
     Indication: PAIN
     Route: 058
     Dates: start: 20130114, end: 20130525
  6. NOVAMINSULFON [Concomitant]
     Indication: PAIN
     Route: 048
     Dates: start: 20130114, end: 20130525
  7. PANTOPRAZOLE [Concomitant]
     Indication: PROPHYLAXIS AGAINST GASTROINTESTINAL ULCER
     Route: 048
     Dates: start: 20130114, end: 20130525
  8. MESTINON [Concomitant]
     Route: 048
     Dates: start: 20130422, end: 20130525
  9. METOCLOPRAMIDE [Concomitant]
     Indication: NAUSEA
     Route: 048
     Dates: start: 20130114, end: 20130525

REACTIONS (2)
  - Ileus [Fatal]
  - Malignant neoplasm progression [Fatal]
